FAERS Safety Report 7393421-9 (Version None)
Quarter: 2011Q2

REPORT INFORMATION
  Report Type: 
  Country: None (occurrence: None)
  Receive Date: 20110405
  Receipt Date: 20110325
  Transmission Date: 20111010
  Serious: Yes (Hospitalization, Other)
  Sender: FDA-Public Use
  Company Number: DE-RANBAXY-2011R1-43326

PATIENT
  Age: 50 Year

DRUGS (3)
  1. CIPROFLOXACIN [Suspect]
     Indication: SEPSIS
     Dosage: 400 MG
     Route: 042
  2. ERYTHROMYCIN [Suspect]
     Indication: OESOPHAGOGASTRODUODENOSCOPY
     Dosage: 250 MG, UNK
     Route: 042
  3. AMIODARONE HCL [Suspect]
     Indication: PRODUCT USED FOR UNKNOWN INDICATION
     Route: 042

REACTIONS (4)
  - EXTRASYSTOLES [None]
  - TORSADE DE POINTES [None]
  - TACHYCARDIA [None]
  - ATRIAL FIBRILLATION [None]
